FAERS Safety Report 5753099-4 (Version None)
Quarter: 2008Q2

REPORT INFORMATION
  Report Type: 
  Country: None (occurrence: None)
  Receive Date: 20080527
  Receipt Date: 20080515
  Transmission Date: 20081010
  Serious: Yes (Hospitalization)
  Sender: FDA-Public Use
  Company Number: 2008-01685

PATIENT
  Age: 59 Year
  Sex: Male
  Weight: 72.1 kg

DRUGS (2)
  1. VELCADE [Suspect]
     Indication: MULTIPLE MYELOMA
     Dates: start: 20070501, end: 20070601
  2. VELCADE [Suspect]
     Indication: MULTIPLE MYELOMA
     Dates: start: 20070901, end: 20071101

REACTIONS (4)
  - CARDIAC DISORDER [None]
  - CONFUSIONAL STATE [None]
  - DISEASE PROGRESSION [None]
  - MULTIPLE MYELOMA [None]
